FAERS Safety Report 5734889-0 (Version None)
Quarter: 2008Q2

REPORT INFORMATION
  Report Type: 
  Country: None (occurrence: None)
  Receive Date: 20080512
  Receipt Date: 20080430
  Transmission Date: 20081010
  Serious: Yes (Hospitalization)
  Sender: FDA-Public Use
  Company Number: B0517317A

PATIENT
  Age: 28 Year
  Sex: Female

DRUGS (3)
  1. LAPATINIB [Suspect]
     Dosage: 1250MG PER DAY
     Route: 048
  2. XELODA [Suspect]
     Dosage: 1000MGM2 PER DAY
     Route: 048
     Dates: start: 20080401, end: 20080413
  3. DEXAMETHASONE [Concomitant]
     Dosage: 12MG PER DAY
     Route: 048

REACTIONS (3)
  - DIARRHOEA [None]
  - PHOTOKERATITIS [None]
  - RASH [None]
